FAERS Safety Report 19751939 (Version 1)
Quarter: 2021Q3

REPORT INFORMATION
  Report Type: Spontaneous
  Country: US (occurrence: US)
  Receive Date: 20210826
  Receipt Date: 20210826
  Transmission Date: 20211014
  Serious: No
  Sender: FDA-Public Use
  Company Number: US-KYOWAKIRIN-2021BKK014313

PATIENT

DRUGS (2)
  1. SANCUSO [Suspect]
     Active Substance: GRANISETRON
     Indication: PROPHYLAXIS OF NAUSEA AND VOMITING
     Dosage: 1 PATCH AS DIRECTED FOR NAUSEA
     Route: 061
  2. SANCUSO [Suspect]
     Active Substance: GRANISETRON
     Dosage: 1 PATCH AS DIRECTED FOR NAUSEA
     Route: 061

REACTIONS (2)
  - Product adhesion issue [Unknown]
  - Therapy non-responder [Unknown]
